FAERS Safety Report 13090395 (Version 1)
Quarter: 2017Q1

REPORT INFORMATION
  Report Type: Spontaneous
  Country: JP (occurrence: JP)
  Receive Date: 20170105
  Receipt Date: 20170105
  Transmission Date: 20170428
  Serious: Yes (Other)
  Sender: FDA-Public Use
  Company Number: PHHY2016JP180021

PATIENT
  Age: 65 Year
  Sex: Male

DRUGS (2)
  1. PACLITAXEL. [Suspect]
     Active Substance: PACLITAXEL
     Indication: LUNG NEOPLASM MALIGNANT
     Dosage: 69 MG/KG
     Route: 065
  2. CARBOPLATIN. [Suspect]
     Active Substance: CARBOPLATIN
     Indication: LUNG NEOPLASM MALIGNANT
     Route: 065

REACTIONS (7)
  - Hepatotoxicity [Unknown]
  - White blood cell count decreased [Unknown]
  - Drug effect incomplete [Unknown]
  - Hepatocellular carcinoma [Recovering/Resolving]
  - Nausea [Unknown]
  - Neutrophil count decreased [Unknown]
  - Mucosal inflammation [Unknown]
